FAERS Safety Report 6349316-2 (Version None)
Quarter: 2009Q3

REPORT INFORMATION
  Report Type: 
  Country: None (occurrence: None)
  Receive Date: 20090911
  Receipt Date: 20090902
  Transmission Date: 20100115
  Serious: Yes (Other)
  Sender: FDA-Public Use
  Company Number: B0591127A

PATIENT
  Sex: Female

DRUGS (4)
  1. KIVEXA [Suspect]
     Indication: HIV INFECTION
  2. FLUTICASONE [Suspect]
     Indication: LUNG INFECTION
     Route: 055
  3. REYATAZ [Suspect]
     Indication: HIV INFECTION
  4. SUSTIVA [Suspect]
     Indication: HIV INFECTION

REACTIONS (3)
  - CUSHING'S SYNDROME [None]
  - DRUG INTOLERANCE [None]
  - LUNG INFECTION [None]
